FAERS Safety Report 13153178 (Version 2)
Quarter: 2017Q4

REPORT INFORMATION
  Report Type: Spontaneous
  Country: CA (occurrence: CA)
  Receive Date: 20170126
  Receipt Date: 20171218
  Transmission Date: 20180320
  Serious: Yes (Other)
  Sender: FDA-Public Use
  Company Number: CA-ORION CORPORATION ORION PHARMA-TREX2016-2617

PATIENT
  Age: 35 Year
  Sex: Female

DRUGS (2)
  1. METHOTREXATE (TRADE NAME UNKNOWN) [Suspect]
     Active Substance: METHOTREXATE
     Indication: RHEUMATOID ARTHRITIS
     Route: 065
     Dates: start: 199301, end: 199901
  2. METHOTREXATE (TRADE NAME UNKNOWN) [Suspect]
     Active Substance: METHOTREXATE
     Dosage: 7.5 MG/ML
     Route: 065
     Dates: end: 199907

REACTIONS (11)
  - Nasopharyngitis [Recovered/Resolved]
  - Leukopenia [Recovered/Resolved]
  - Pharyngitis streptococcal [Recovered/Resolved]
  - Oral discomfort [Unknown]
  - Cough [Unknown]
  - Drug intolerance [Recovered/Resolved]
  - Dyspnoea [Recovered/Resolved]
  - Bronchitis [Unknown]
  - Infection [Recovered/Resolved]
  - Therapy non-responder [Unknown]
  - Anxiety [Unknown]

NARRATIVE: CASE EVENT DATE: 1999
